FAERS Safety Report 4882136-4 (Version None)
Quarter: 2006Q1

REPORT INFORMATION
  Report Type: 
  Country: None (occurrence: None)
  Receive Date: 20060117
  Receipt Date: 20050824
  Transmission Date: 20060701
  Serious: Yes (Hospitalization, Disabling)
  Sender: FDA-Public Use
  Company Number: US-MERCK-0508USA04283

PATIENT
  Age: 76 Year
  Sex: Female
  Weight: 82 kg

DRUGS (3)
  1. VIOXX [Suspect]
     Indication: PAIN
     Route: 048
     Dates: start: 20010917, end: 20030704
  2. VIOXX [Suspect]
     Indication: ARTHRITIS
     Route: 048
     Dates: start: 20010917, end: 20030704
  3. TYLENOL (CAPLET) [Concomitant]
     Route: 065

REACTIONS (3)
  - LUNG DISORDER [None]
  - LUNG OPERATION [None]
  - MYOCARDIAL INFARCTION [None]
